FAERS Safety Report 6018682-X (Version None)
Quarter: 2008Q4

REPORT INFORMATION
  Report Type: 
  Country: None (occurrence: None)
  Receive Date: 20081223
  Receipt Date: 20081212
  Transmission Date: 20090506
  Serious: Yes (Hospitalization)
  Sender: FDA-Public Use
  Company Number: JP-ABBOTT-08P-087-0483547-00

PATIENT
  Sex: Male
  Weight: 67 kg

DRUGS (6)
  1. HUMIRA [Suspect]
     Indication: CROHN'S DISEASE
     Route: 058
     Dates: start: 20070611, end: 20070723
  2. HUMIRA [Suspect]
     Route: 058
     Dates: start: 20070806, end: 20070901
  3. HUMIRA [Suspect]
     Route: 058
     Dates: start: 20070922, end: 20081029
  4. ELENTAL [Concomitant]
     Indication: MEDICAL DIET
     Route: 048
     Dates: start: 20060829, end: 20081018
  5. PENTASA [Concomitant]
     Indication: CROHN'S DISEASE
     Route: 048
     Dates: start: 20060904, end: 20081018
  6. ZANTAC [Concomitant]
     Indication: CROHN'S DISEASE
     Route: 048
     Dates: start: 20060904, end: 20081018

REACTIONS (1)
  - ILEUS [None]
